FAERS Safety Report 17184589 (Version 1)
Quarter: 2019Q4

REPORT INFORMATION
  Report Type: Spontaneous
  Country: FR (occurrence: FR)
  Receive Date: 20191220
  Receipt Date: 20191220
  Transmission Date: 20200122
  Serious: Yes (Hospitalization)
  Sender: FDA-Public Use
  Company Number: FR-MYLANLABS-2019M1125400

PATIENT
  Age: 65 Year
  Sex: Female
  Weight: 58 kg

DRUGS (13)
  1. ESOMEPRAZOLE. [Suspect]
     Active Substance: ESOMEPRAZOLE MAGNESIUM
     Indication: PRODUCT USED FOR UNKNOWN INDICATION
     Dosage: UNK UNK,UNK
     Route: 048
  2. AVASTIN [Concomitant]
     Active Substance: BEVACIZUMAB
     Indication: BREAST CANCER RECURRENT
     Dosage: 1 DF, QW
     Route: 042
     Dates: start: 201202
  3. LARGACTIL                          /00011901/ [Suspect]
     Active Substance: CHLORPROMAZINE
     Indication: MAJOR DEPRESSION
     Dosage: 200 DF,QD (200 DROPS DAILY WITH 50 DROPS IF NEEDED)
     Route: 048
     Dates: start: 20120620, end: 20120628
  4. ANAFRANIL [Concomitant]
     Active Substance: CLOMIPRAMINE HYDROCHLORIDE
     Dosage: 75 MG,QD
     Route: 048
     Dates: start: 20120705
  5. ZYPREXA [Concomitant]
     Active Substance: OLANZAPINE
     Indication: MAJOR DEPRESSION
     Dosage: 1 DF
     Route: 048
     Dates: start: 20120628, end: 20120716
  6. ANAFRANIL [Concomitant]
     Active Substance: CLOMIPRAMINE HYDROCHLORIDE
     Dosage: 75 MILLIGRAM, QD
     Route: 030
     Dates: start: 20120621
  7. SIMVASTATIN. [Concomitant]
     Active Substance: SIMVASTATIN
     Indication: BREAST CANCER RECURRENT
     Dosage: 1 DF,QW
     Route: 042
     Dates: start: 201202
  8. ANAFRANIL [Concomitant]
     Active Substance: CLOMIPRAMINE HYDROCHLORIDE
     Indication: MAJOR DEPRESSION
     Dosage: 150 MG,QD  PROGRESSIVE INTRODUCTION WITH MAINTENANCE DOSE ON 22/06/2012 AT 150 MG / DAY THEN DECR
     Route: 048
     Dates: start: 20120622, end: 20120704
  9. ONDANSETRON [Concomitant]
     Active Substance: ONDANSETRON
     Indication: VOMITING
     Dosage: 1 DF,QW
     Route: 048
     Dates: start: 201202
  10. TAXOL [Concomitant]
     Active Substance: PACLITAXEL
     Indication: BREAST CANCER RECURRENT
     Dosage: 1 DF,QW
     Route: 042
     Dates: start: 201202
  11. ANAFRANIL [Concomitant]
     Active Substance: CLOMIPRAMINE HYDROCHLORIDE
     Indication: MAJOR DEPRESSION
     Dosage: 2 DOSAGE FORM, QD
     Route: 030
     Dates: start: 20120620, end: 20120620
  12. ZOPHREN                            /00955302/ [Concomitant]
     Active Substance: ONDANSETRON
     Indication: VOMITING
     Dosage: 1 DF, QW
     Route: 048
     Dates: start: 201202
  13. GUTRON [Concomitant]
     Active Substance: MIDODRINE
     Indication: ORTHOSTATIC HYPOTENSION
     Dosage: DU 22/06/2012 AU 03/07/2012 : 12 COMPRIM?S /JOUR PUIS ? PARTIR
     Route: 048
     Dates: start: 20120622, end: 20120716

REACTIONS (1)
  - Orthostatic hypotension [Recovered/Resolved]

NARRATIVE: CASE EVENT DATE: 20120622
